FAERS Safety Report 10070049 (Version 1)
Quarter: 2014Q2

REPORT INFORMATION
  Report Type: Spontaneous
  Country: US (occurrence: None)
  Receive Date: 20140409
  Receipt Date: 20140409
  Transmission Date: 20141212
  Serious: Yes (Hospitalization)
  Sender: FDA-Public Use
  Company Number: None

PATIENT
  Age: 71 Year
  Sex: Female

DRUGS (1)
  1. VILAZODONE [Suspect]
     Indication: DRUG THERAPY
     Route: 048

REACTIONS (6)
  - Tremor [None]
  - Hypoaesthesia [None]
  - Tremor [None]
  - Akathisia [None]
  - Drug interaction [None]
  - Hemiparesis [None]
